FAERS Safety Report 9563465 (Version 1)
Quarter: 2013Q3

REPORT INFORMATION
  Report Type: Spontaneous
  Country: US (occurrence: None)
  Receive Date: 20130926
  Receipt Date: 20130926
  Transmission Date: 20140515
  Serious: Yes (Hospitalization)
  Sender: FDA-Public Use
  Company Number: None

PATIENT
  Age: 78 Year
  Sex: Female
  Weight: 47.6 kg

DRUGS (12)
  1. PRADAXA [Suspect]
     Indication: ATRIAL FIBRILLATION
     Route: 048
  2. DABIGATRAN [Concomitant]
  3. VALSARTAN [Concomitant]
  4. CALCIUM [Concomitant]
  5. LORATIDINE [Concomitant]
  6. DOCUSATE [Concomitant]
  7. HYDOCHLOROTHIAZIDE [Concomitant]
  8. LOVASTATIN [Concomitant]
  9. OMEPRAZOLE [Concomitant]
  10. SOTALOL [Concomitant]
  11. TRAMADOL [Concomitant]
  12. VITAMIN E [Concomitant]

REACTIONS (1)
  - Prothrombin time abnormal [None]
